FAERS Safety Report 4856354-5 (Version None)
Quarter: 2005Q4

REPORT INFORMATION
  Report Type: 
  Country: None (occurrence: None)
  Receive Date: 20051202
  Receipt Date: 20051202
  Transmission Date: 20060501
  Serious: Yes (Other)
  Sender: FDA-Public Use
  Company Number: None

PATIENT
  Age: 75 Year
  Sex: Female

DRUGS (1)
  1. METHADOSE [Suspect]
     Indication: BACK PAIN
     Dosage: 5 MG PO BID
     Route: 048
     Dates: start: 20051119, end: 20051124

REACTIONS (9)
  - ACTIVITIES OF DAILY LIVING IMPAIRED [None]
  - CONFUSIONAL STATE [None]
  - DEPRESSED LEVEL OF CONSCIOUSNESS [None]
  - DYSPHAGIA [None]
  - EYE DISORDER [None]
  - PUPIL FIXED [None]
  - SLUGGISHNESS [None]
  - TREMOR [None]
  - URINARY RETENTION [None]
